FAERS Safety Report 8911234 (Version 2)
Quarter: 2013Q2

REPORT INFORMATION
  Report Type: Spontaneous
  Country: BR (occurrence: BR)
  Receive Date: 20121116
  Receipt Date: 20130409
  Transmission Date: 20140414
  Serious: Yes (Other)
  Sender: FDA-Public Use
  Company Number: BR-BRISTOL-MYERS SQUIBB COMPANY-17132820

PATIENT
  Age: 59 Year
  Sex: Female

DRUGS (4)
  1. METFORMIN HCL TABS [Suspect]
     Indication: DIABETES MELLITUS
     Route: 048
     Dates: start: 2009
  2. NOVACORT [Suspect]
     Indication: HYPERSENSITIVITY
     Route: 061
     Dates: end: 2012
  3. NOVACORT [Suspect]
     Indication: VAGINAL LACERATION
     Route: 061
     Dates: end: 2012
  4. LOSARTAN POTASSIUM [Concomitant]
     Indication: HYPERTENSION
     Route: 048
     Dates: start: 2009

REACTIONS (3)
  - Vaginal laceration [Recovered/Resolved]
  - Hypersensitivity [Recovered/Resolved]
  - Vulvovaginal burning sensation [Recovered/Resolved]
